FAERS Safety Report 10016722 (Version 1)
Quarter: 2014Q1

REPORT INFORMATION
  Report Type: Spontaneous
  Country: US (occurrence: US)
  Receive Date: 20140318
  Receipt Date: 20140318
  Transmission Date: 20141002
  Serious: Yes (Other)
  Sender: FDA-Public Use
  Company Number: US-AMGEN-USASP2014017651

PATIENT
  Age: 87 Year
  Sex: Male
  Weight: 60.32 kg

DRUGS (1)
  1. PROLIA [Suspect]
     Indication: OSTEOPENIA
     Dosage: UNK
     Route: 065

REACTIONS (5)
  - Paraplegia [Unknown]
  - Myasthenia gravis [Unknown]
  - Glaucoma [Unknown]
  - Hypertension [Unknown]
  - Colitis [Unknown]
